FAERS Safety Report 18381717 (Version 3)
Quarter: 2020Q4

REPORT INFORMATION
  Report Type: Spontaneous
  Country: US (occurrence: US)
  Receive Date: 20201014
  Receipt Date: 20201020
  Transmission Date: 20210114
  Serious: No
  Sender: FDA-Public Use
  Company Number: US-PFIZER INC-2020396591

PATIENT
  Age: 70 Year

DRUGS (1)
  1. PREMARIN [Suspect]
     Active Substance: ESTROGENS, CONJUGATED
     Dosage: 0.5 G Q(EVERY) HS(BED TIME) 4 X /WEEK
     Route: 067

REACTIONS (3)
  - Stress [Unknown]
  - Depressed mood [Unknown]
  - Off label use [Unknown]
